FAERS Safety Report 17825514 (Version 1)
Quarter: 2020Q2

REPORT INFORMATION
  Report Type: Spontaneous
  Country: CZ (occurrence: CZ)
  Receive Date: 20200526
  Receipt Date: 20200526
  Transmission Date: 20200714
  Serious: Yes (Other)
  Sender: FDA-Public Use
  Company Number: CZ-FRESENIUS KABI-FK202005052

PATIENT
  Sex: Male

DRUGS (6)
  1. TRIFLURIDINE. [Concomitant]
     Active Substance: TRIFLURIDINE
     Indication: INTESTINAL ADENOCARCINOMA
  2. LEUCOVORIN CALCIUM (MANUFACTURER UNKNOWN) [Suspect]
     Active Substance: LEUCOVORIN CALCIUM
     Indication: INTESTINAL ADENOCARCINOMA
     Route: 065
  3. FLUOROURACIL. [Suspect]
     Active Substance: FLUOROURACIL
     Indication: INTESTINAL ADENOCARCINOMA
     Route: 065
  4. BEVACIZUMAB. [Suspect]
     Active Substance: BEVACIZUMAB
     Indication: INTESTINAL ADENOCARCINOMA
     Route: 065
  5. TIPIRACIL [Concomitant]
     Active Substance: TIPIRACIL
     Indication: INTESTINAL ADENOCARCINOMA
  6. IRINOTECAN (MANUFACTURER UNKNOWN) [Suspect]
     Active Substance: IRINOTECAN
     Indication: INTESTINAL ADENOCARCINOMA
     Route: 065

REACTIONS (1)
  - Palmar-plantar erythrodysaesthesia syndrome [Unknown]
